FAERS Safety Report 10191189 (Version 1)
Quarter: 2014Q2

REPORT INFORMATION
  Report Type: Spontaneous
  Country: US (occurrence: None)
  Receive Date: 20140522
  Receipt Date: 20140522
  Transmission Date: 20141212
  Serious: Yes (Death)
  Sender: FDA-Public Use
  Company Number: None

PATIENT
  Age: 70 Year
  Sex: Female
  Weight: 52.16 kg

DRUGS (14)
  1. EXJADE [Suspect]
     Indication: ACUTE MYELOID LEUKAEMIA
     Route: 048
     Dates: start: 20140407, end: 20140413
  2. AZACITIDINE [Suspect]
     Indication: ACUTE MYELOID LEUKAEMIA
     Route: 058
     Dates: start: 20140407, end: 20140413
  3. B-COMPLEX VITAMINS [Concomitant]
  4. FENTANYL PATCH [Concomitant]
  5. LEVOFLOXACIN 250 MG [Concomitant]
  6. LEVOTHYROXINE 88 MCG [Concomitant]
  7. ROBINIROLE 0.5MG [Concomitant]
  8. ATIVAN 1 MG [Concomitant]
  9. ONDANSETRON 4MG [Concomitant]
  10. ALPRAZOLAM 0.25MG [Concomitant]
  11. ACETAMINOPHEN 500 MG 227 [Concomitant]
  12. TRETINOIN (REFISSA) 0.05% [Concomitant]
  13. CLOBETASOL 0.05% [Concomitant]
  14. HYDROCORTISONE (RECTAL) 2.5% CREAM [Concomitant]

REACTIONS (17)
  - Aspartate aminotransferase increased [None]
  - Blood lactate dehydrogenase increased [None]
  - White blood cell count increased [None]
  - Nausea [None]
  - Vomiting [None]
  - Dizziness [None]
  - Haemoglobin decreased [None]
  - Thrombocytopenia [None]
  - Constipation [None]
  - Muscle twitching [None]
  - Excessive eye blinking [None]
  - Unresponsive to stimuli [None]
  - Haemorrhage intracranial [None]
  - Hepatosplenomegaly [None]
  - Splenic infarction [None]
  - Convulsion [None]
  - Mental status changes [None]
